FAERS Safety Report 18683561 (Version 1)
Quarter: 2020Q4

REPORT INFORMATION
  Report Type: Spontaneous
  Country: CA (occurrence: CA)
  Receive Date: 20201230
  Receipt Date: 20201230
  Transmission Date: 20210114
  Serious: Yes (Other)
  Sender: FDA-Public Use
  Company Number: CA-PFIZER INC-2020512610

PATIENT
  Age: 53 Year
  Sex: Female

DRUGS (15)
  1. CEFAZOLIN [Suspect]
     Active Substance: CEFAZOLIN
     Route: 030
  2. CELECOXIB. [Concomitant]
     Active Substance: CELECOXIB
  3. CHOLECALCIFEROL [Concomitant]
     Active Substance: CHOLECALCIFEROL
  4. VITAMIN B12 [Concomitant]
     Active Substance: CYANOCOBALAMIN
  5. MIDAZOLAM. [Concomitant]
     Active Substance: MIDAZOLAM
  6. TRANEXAMIC ACID. [Suspect]
     Active Substance: TRANEXAMIC ACID
     Route: 042
  7. BUPIVACAINE. [Concomitant]
     Active Substance: BUPIVACAINE
  8. EPINEPHRINE. [Concomitant]
     Active Substance: EPINEPHRINE
  9. MORPHINE SULFATE. [Concomitant]
     Active Substance: MORPHINE SULFATE
  10. FENTANYL. [Concomitant]
     Active Substance: FENTANYL
  11. VITAMINS NOS [Concomitant]
     Active Substance: VITAMINS
  12. CODEINE PHOSPHATE [Concomitant]
     Active Substance: CODEINE PHOSPHATE
  13. ACETAMINOPHEN. [Concomitant]
     Active Substance: ACETAMINOPHEN
  14. ROPIVACAINE HYDROCHLORIDE. [Concomitant]
     Active Substance: ROPIVACAINE HYDROCHLORIDE
  15. CODEINE [Concomitant]
     Active Substance: CODEINE

REACTIONS (4)
  - Salivary hypersecretion [Recovered/Resolved]
  - Depressed level of consciousness [Recovered/Resolved]
  - Dyskinesia [Recovered/Resolved]
  - Bradycardia [Recovered/Resolved]
